FAERS Safety Report 6100654-8 (Version None)
Quarter: 2009Q1

REPORT INFORMATION
  Report Type: 
  Country: None (occurrence: None)
  Receive Date: 20090227
  Receipt Date: 20090227
  Transmission Date: 20090719
  Serious: Yes (Other)
  Sender: FDA-Public Use
  Company Number: None

PATIENT
  Sex: Female
  Weight: 77.1115 kg

DRUGS (2)
  1. ABILIFY [Suspect]
     Indication: BIPOLAR DISORDER
     Dosage: 1 TABLET ONCE A DAY PO
     Route: 048
     Dates: start: 20090219, end: 20090225
  2. ABILIFY [Suspect]
     Indication: MOOD SWINGS
     Dosage: 1 TABLET ONCE A DAY PO
     Route: 048
     Dates: start: 20090219, end: 20090225

REACTIONS (6)
  - AGGRESSION [None]
  - DRY MOUTH [None]
  - IRRITABILITY [None]
  - MYALGIA [None]
  - PRURITUS [None]
  - THIRST [None]
